FAERS Safety Report 7806802-3 (Version None)
Quarter: 2011Q4

REPORT INFORMATION
  Report Type: 
  Country: None (occurrence: None)
  Receive Date: 20111011
  Receipt Date: 20111006
  Transmission Date: 20120403
  Serious: Yes (Other)
  Sender: FDA-Public Use
  Company Number: HU-PFIZER INC-2011241389

PATIENT
  Age: 60 Year
  Sex: Female
  Weight: 56 kg

DRUGS (4)
  1. ATORVASTATIN CALCIUM [Suspect]
     Indication: HYPERCHOLESTEROLAEMIA
     Dosage: 40 MG, 1X/DAY
     Dates: start: 20110415, end: 20110418
  2. SERMION [Concomitant]
     Dosage: UNK
     Dates: start: 20101010
  3. PERINDOPRIL TERT-BUTYLAMINE [Concomitant]
     Dosage: UNK
     Dates: start: 20091010
  4. TENOX [Concomitant]
     Dosage: UNK
     Dates: start: 20100210

REACTIONS (2)
  - SWELLING FACE [None]
  - RASH GENERALISED [None]
